FAERS Safety Report 8493523-X (Version None)
Quarter: 2012Q2

REPORT INFORMATION
  Report Type: 
  Country: None (occurrence: None)
  Receive Date: 20120402
  Receipt Date: 20081112
  Transmission Date: 20120825
  Serious: Yes (Other)
  Sender: FDA-Public Use
  Company Number: PHEH2008US10166

PATIENT
  Sex: Female

DRUGS (1)
  1. EXFORGE [Suspect]
     Dosage: 5/160MG
     Dates: start: 20070101

REACTIONS (4)
  - TACHYCARDIA [None]
  - DYSPHAGIA [None]
  - DIZZINESS [None]
  - OROPHARYNGEAL PAIN [None]
